FAERS Safety Report 4387883-9 (Version None)
Quarter: 2004Q2

REPORT INFORMATION
  Report Type: 
  Country: None (occurrence: None)
  Receive Date: 20040607
  Receipt Date: 20031016
  Transmission Date: 20050107
  Serious: Yes (Other)
  Sender: FDA-Public Use
  Company Number: 349600

PATIENT
  Age: 17 Year
  Sex: Female

DRUGS (7)
  1. ACCUTANE [Suspect]
     Indication: ACNE
     Dosage: 20 MG DAILY ORAL
     Route: 048
     Dates: start: 19951211, end: 19980715
  2. ACCUTANE [Suspect]
     Indication: SKIN PAPILLOMA
     Dosage: 20 MG DAILY ORAL
     Route: 048
     Dates: start: 19951211, end: 19980715
  3. ORTHO TRI-CYCLEN [Concomitant]
  4. IRON SUPPLEMENT (IRON NOS) [Concomitant]
  5. TAGAMET HB [Concomitant]
  6. MINOCIN (MINOCYCLINE HYDROCHLORIDE) [Concomitant]
  7. SALICYLIC ACID LOTION (SALICYLIC ACID) [Concomitant]

REACTIONS (9)
  - ABDOMINAL PAIN [None]
  - ACNE [None]
  - COLITIS ULCERATIVE [None]
  - DIARRHOEA [None]
  - DRY SKIN [None]
  - INFLAMMATORY BOWEL DISEASE [None]
  - NAUSEA [None]
  - VOMITING [None]
  - WEIGHT DECREASED [None]
